FAERS Safety Report 24206006 (Version 1)
Quarter: 2024Q3

REPORT INFORMATION
  Report Type: Spontaneous
  Country: US (occurrence: US)
  Receive Date: 20240813
  Receipt Date: 20240813
  Transmission Date: 20241016
  Serious: Yes (Other)
  Sender: PFIZER
  Company Number: US-PFIZER INC-PV202400103429

PATIENT
  Age: 46 Year
  Sex: Female

DRUGS (5)
  1. VINCRISTINE SULFATE [Suspect]
     Active Substance: VINCRISTINE SULFATE
     Indication: Atypical teratoid/rhabdoid tumour of CNS
     Dosage: 1 MG/M2, CYCLIC,  3 CYCLE
  2. METHOTREXATE SODIUM [Suspect]
     Active Substance: METHOTREXATE SODIUM
     Indication: Atypical teratoid/rhabdoid tumour of CNS
     Dosage: 3.5 MG/M2, CYCLIC
  3. CISPLATIN [Suspect]
     Active Substance: CISPLATIN
     Indication: Atypical teratoid/rhabdoid tumour of CNS
     Dosage: 75 MG/M2, CYCLIC
  4. CYCLOPHOSPHAMIDE [Suspect]
     Active Substance: CYCLOPHOSPHAMIDE
     Indication: Atypical teratoid/rhabdoid tumour of CNS
     Dosage: 1.5 G/M2, CYCLIC
  5. DEXAMETHASONE [Suspect]
     Active Substance: DEXAMETHASONE
     Indication: Atypical teratoid/rhabdoid tumour of CNS
     Dosage: UNK UNK, CYCLIC

REACTIONS (4)
  - Pulmonary embolism [Unknown]
  - Febrile neutropenia [Unknown]
  - Neuropathy peripheral [Unknown]
  - Off label use [Unknown]
